FAERS Safety Report 17929830 (Version 1)
Quarter: 2020Q2

REPORT INFORMATION
  Report Type: Spontaneous
  Country: US (occurrence: US)
  Receive Date: 20200623
  Receipt Date: 20200623
  Transmission Date: 20200714
  Serious: No
  Sender: FDA-Public Use
  Company Number: US-ALLERGAN-1944950US

PATIENT
  Sex: Female

DRUGS (6)
  1. APOTHECANNA [Concomitant]
     Indication: PAIN IN EXTREMITY
     Dosage: UNK
     Route: 061
     Dates: start: 2019
  2. OTHER MEDICATIONS FOR ANXIETY [Concomitant]
     Indication: ANXIETY
     Dosage: UNK
     Route: 065
  3. APOTHECANNA [Concomitant]
     Indication: MUSCULOSKELETAL STIFFNESS
  4. CANNABIS [Concomitant]
     Active Substance: CANNABIS SATIVA SUBSP. INDICA TOP
     Indication: PAIN IN EXTREMITY
     Dosage: UNK
     Route: 061
     Dates: start: 2019
  5. FLUOXETINE HCL UNK [Suspect]
     Active Substance: FLUOXETINE HYDROCHLORIDE
     Indication: ANXIETY
     Dosage: UNK
     Route: 065
  6. CANNABIS [Concomitant]
     Active Substance: CANNABIS SATIVA SUBSP. INDICA TOP
     Indication: MUSCULOSKELETAL STIFFNESS

REACTIONS (4)
  - Paradoxical drug reaction [Unknown]
  - Nightmare [Unknown]
  - Off label use [Unknown]
  - Drug ineffective for unapproved indication [Unknown]
